FAERS Safety Report 8923180 (Version 1)
Quarter: 2012Q4

REPORT INFORMATION
  Report Type: 
  Country: US (occurrence: US)
  Receive Date: 20121123
  Receipt Date: 20121123
  Transmission Date: 20130627
  Serious: No
  Sender: FDA-Public Use
  Company Number: US-PFIZER INC-2012292962

PATIENT
  Age: 54 Year
  Sex: Female
  Weight: 59.9 kg

DRUGS (3)
  1. CHANTIX [Suspect]
     Indication: SMOKING CESSATION THERAPY
     Dosage: 0.5 mg, 2x/day
     Route: 048
     Dates: start: 20121109
  2. ADDERALL [Concomitant]
     Dosage: 30 mg, 2x/day
  3. XANAX [Concomitant]
     Dosage: 2 mg, 3x/day

REACTIONS (3)
  - Nausea [Not Recovered/Not Resolved]
  - Fatigue [Not Recovered/Not Resolved]
  - Somnolence [Not Recovered/Not Resolved]
